FAERS Safety Report 20585545 (Version 1)
Quarter: 2022Q1

REPORT INFORMATION
  Report Type: Spontaneous
  Country: US (occurrence: US)
  Receive Date: 20220312
  Receipt Date: 20220312
  Transmission Date: 20220424
  Serious: Yes (Hospitalization)
  Sender: FDA-Public Use
  Company Number: US-AVET LIFESCIENCES LTD-2022-AVET-000048

PATIENT
  Age: 68 Year
  Sex: Male

DRUGS (7)
  1. ZOLEDRONIC ACID [Suspect]
     Active Substance: ZOLEDRONIC ACID
     Indication: Metastases to bone
     Dosage: 4 MILLIGRAM, RAPIDITY OF ZA INFUSION WAS 30 MINUTES
     Route: 042
  2. NIVOLUMAB [Concomitant]
     Active Substance: NIVOLUMAB
  3. IPILIMUMAB [Concomitant]
     Active Substance: IPILIMUMAB
  4. DRONABINOL [Concomitant]
     Active Substance: DRONABINOL
  5. MEGESTROL [Concomitant]
     Active Substance: MEGESTROL
  6. NORTRIPTYLINE [Concomitant]
     Active Substance: NORTRIPTYLINE
  7. ZOLPIDEM [Concomitant]
     Active Substance: ZOLPIDEM TARTRATE

REACTIONS (2)
  - Fanconi syndrome [Recovering/Resolving]
  - Acute kidney injury [Unknown]
